FAERS Safety Report 8095578-3 (Version None)
Quarter: 2012Q1

REPORT INFORMATION
  Report Type: 
  Country: None (occurrence: None)
  Receive Date: 20120126
  Receipt Date: 20120110
  Transmission Date: 20120608
  Serious: Yes (Hospitalization)
  Sender: FDA-Public Use
  Company Number: 2012-ES-0001

PATIENT
  Age: 78 Year
  Sex: Male

DRUGS (2)
  1. FENTANYL [Suspect]
     Indication: BREAKTHROUGH PAIN
     Dosage: 400 TO 600 MCG 5-6X PER DAY
     Route: 048
     Dates: start: 20100101
  2. FENTANYL [Suspect]
     Indication: MUSCULOSKELETAL PAIN
     Route: 062
     Dates: start: 20030101

REACTIONS (10)
  - OFF LABEL USE [None]
  - BACK PAIN [None]
  - CONDITION AGGRAVATED [None]
  - ANXIETY [None]
  - IRRITABILITY [None]
  - JOINT RANGE OF MOTION DECREASED [None]
  - INSOMNIA [None]
  - DRUG INEFFECTIVE [None]
  - DRUG DEPENDENCE [None]
  - DISCOMFORT [None]
